FAERS Safety Report 7934813-6 (Version None)
Quarter: 2011Q4

REPORT INFORMATION
  Report Type: 
  Country: None (occurrence: None)
  Receive Date: 20111122
  Receipt Date: 20111114
  Transmission Date: 20120403
  Serious: Yes (Hospitalization, Congenital Anomaly, Other)
  Sender: FDA-Public Use
  Company Number: US-AMGEN-US348785

PATIENT
  Age: 6 Month
  Sex: Male
  Weight: 3.2 kg

DRUGS (21)
  1. ENOXAPARIN [Concomitant]
     Dosage: 40 MG, BID
     Route: 064
     Dates: start: 20080104
  2. FOLIC ACID [Concomitant]
     Dosage: 4 G, QD
     Route: 064
  3. CALCIUM [Concomitant]
     Indication: MILK ALLERGY
     Dosage: 2000 MG, BID
     Route: 064
  4. ENBREL [Suspect]
     Dosage: 50 MG, QWK
     Dates: start: 20050601, end: 20050801
  5. LORATADINE [Concomitant]
     Dosage: 10 MG, QD
     Route: 064
  6. METHOTREXATE [Concomitant]
     Dosage: UNK
     Dates: end: 20040101
  7. ACETYLSALICYLIC ACID SRT [Concomitant]
     Dosage: 81 MG, QD
     Route: 064
  8. FISH OIL [Concomitant]
     Indication: RHEUMATOID ARTHRITIS
     Dosage: 1 G, BID
     Route: 064
  9. ENBREL [Suspect]
     Dosage: 25 MG, 2 TIMES/WK
     Route: 064
     Dates: start: 20040801, end: 20041201
  10. FAMOTIDINE [Concomitant]
     Dosage: 20 MG, BID
     Route: 048
  11. VITAMIN B COMPLEX CAP [Concomitant]
     Dosage: UNK UNK, UNK
     Route: 064
  12. CLINDAMYCIN [Concomitant]
     Dosage: UNK UNK, UNK
     Route: 064
  13. ASCORBIC ACID [Concomitant]
     Dosage: 4000 MG, QD
     Route: 064
  14. FLUTICASONE PROPIONATE [Concomitant]
     Dosage: UNK UNK, BID
     Route: 064
  15. THYROID TAB [Concomitant]
     Indication: TRI-IODOTHYRONINE DECREASED
     Dosage: 30 MG, QD
     Route: 064
  16. PLAQUENIL [Concomitant]
     Dosage: UNK
  17. ENBREL [Suspect]
     Indication: RHEUMATOID ARTHRITIS
     Dosage: 25 MG, 2 TIMES/WK
     Dates: start: 20071001
  18. ENBREL [Suspect]
     Dosage: 25 MG, 2 TIMES/WK
     Dates: start: 20060101, end: 20060901
  19. MULTI-VITAMINS [Concomitant]
     Dosage: UNK UNK, QD
     Route: 064
  20. FLUTICASONE PROPIONATE/SALMETEROL [Concomitant]
     Dosage: UNK UNK, BID
     Route: 064
  21. ALBUTEROL SULFATE [Concomitant]
     Dosage: UNK UNK, PRN
     Route: 064

REACTIONS (7)
  - BLADDER DIVERTICULUM [None]
  - RENAL HYPERTROPHY [None]
  - CLOSTRIDIAL INFECTION [None]
  - REFLUX NEPHROPATHY [None]
  - RESPIRATORY SYNCYTIAL VIRUS INFECTION [None]
  - PALATAL DISORDER [None]
  - URINARY TRACT INFECTION [None]
